FAERS Safety Report 9783769 (Version 1)
Quarter: 2013Q4

REPORT INFORMATION
  Report Type: Spontaneous
  Country: US (occurrence: US)
  Receive Date: 20131226
  Receipt Date: 20131226
  Transmission Date: 20140711
  Serious: No
  Sender: FDA-Public Use
  Company Number: US-PFIZER INC-2013366451

PATIENT
  Age: 56 Year
  Sex: Female
  Weight: 87.08 kg

DRUGS (2)
  1. GABAPENTIN [Suspect]
     Indication: NEURALGIA
     Dosage: 600 MG (TWO CAPSULES OF 300 MG), 3X/DAY
     Route: 048
     Dates: start: 2012, end: 2012
  2. GABAPENTIN [Suspect]
     Dosage: 300 MG (ONE CAPSULE OF 300MG), 6X/DAY
     Route: 048
     Dates: start: 2012, end: 20131111

REACTIONS (1)
  - Drug intolerance [Unknown]
